FAERS Safety Report 10528819 (Version 1)
Quarter: 2014Q4

REPORT INFORMATION
  Report Type: Spontaneous
  Country: US (occurrence: US)
  Receive Date: 20141020
  Receipt Date: 20141020
  Transmission Date: 20150528
  Serious: No
  Sender: FDA-Public Use
  Company Number: US-ENDO PHARMACEUTICALS INC.-CARI20140011

PATIENT
  Sex: Male

DRUGS (1)
  1. CARISOPRODOL TABLETS 350MG [Suspect]
     Active Substance: CARISOPRODOL
     Indication: MYALGIA
     Dosage: UNKNOWN
     Route: 048
     Dates: start: 2012

REACTIONS (2)
  - Feeling drunk [Unknown]
  - Drug effect increased [Unknown]

NARRATIVE: CASE EVENT DATE: 2014
